FAERS Safety Report 8965866 (Version 2)
Quarter: 2013Q1

REPORT INFORMATION
  Report Type: Spontaneous
  Country: DE (occurrence: None)
  Receive Date: 20121206
  Receipt Date: 20130107
  Transmission Date: 20140127
  Serious: Yes (Hospitalization)
  Sender: FDA-Public Use
  Company Number: 2012MPI00540

PATIENT
  Sex: 0

DRUGS (6)
  1. BRENTUXIMAB VEDOTIN [Suspect]
     Indication: HODGKIN^S DISEASE
     Dates: start: 20121109, end: 20121109
  2. CYCLOPHOSPHAMIDE (CYCLOPHOSPHAMIDE) [Suspect]
     Indication: HODGKIN^S DISEASE
     Dates: start: 20121110, end: 20121110
  3. DOXORUBICIN (DOXORUBICIN) (DOXORUBICIN) [Suspect]
     Indication: HODGKIN^S DISEASE
     Dates: start: 20121110, end: 20121110
  4. ETOPOSIDE (ETOPOSIDE) [Suspect]
     Indication: HODGKIN^S DISEASE
     Dates: start: 20121110, end: 20121112
  5. DACARBAZINE [Suspect]
     Indication: HODGKIN^S DISEASE
     Dates: start: 20121111, end: 20121112
  6. DEXAMETHASONE (DEXAMETHASONE) [Suspect]
     Indication: HODGKIN^S DISEASE
     Dates: start: 20121110, end: 20121113

REACTIONS (2)
  - Bursitis [None]
  - Neutropenia [None]
